FAERS Safety Report 8152617-9 (Version None)
Quarter: 2012Q1

REPORT INFORMATION
  Report Type: 
  Country: None (occurrence: None)
  Receive Date: 20120221
  Receipt Date: 20120214
  Transmission Date: 20120608
  Serious: Yes (Death, Hospitalization)
  Sender: FDA-Public Use
  Company Number: US-JNJFOC-2007328819

PATIENT
  Sex: Female
  Weight: 60.8 kg

DRUGS (4)
  1. ANTIPSYCHOTICS [Concomitant]
     Indication: PSYCHOTHERAPY
     Dosage: DAILY DOSE TEXT: UNKNOWN
     Route: 065
  2. TYLENOL PM [Suspect]
     Indication: PRODUCT USED FOR UNKNOWN INDICATION
     Dosage: DAILY DOSE TEXT: ^7 -8 BOTTLES^
     Route: 048
     Dates: start: 20070507
  3. BENADRYL [Suspect]
     Route: 048
  4. BENADRYL [Suspect]
     Indication: PRODUCT USED FOR UNKNOWN INDICATION
     Dosage: DAILY DOSE TEXT: 2 BOTTLES
     Route: 048

REACTIONS (1)
  - INTENTIONAL OVERDOSE [None]
